FAERS Safety Report 22318505 (Version 1)
Quarter: 2023Q2

REPORT INFORMATION
  Report Type: Spontaneous
  Country: TW (occurrence: TW)
  Receive Date: 20230515
  Receipt Date: 20230515
  Transmission Date: 20230722
  Serious: Yes (Death, Life-Threatening, Hospitalization)
  Sender: FDA-Public Use
  Company Number: TW-drreddys-LIT/TAI/23/0164919

PATIENT
  Age: 50 Year
  Sex: Female

DRUGS (3)
  1. DOXORUBICIN [Suspect]
     Active Substance: DOXORUBICIN
     Indication: Extra-osseous Ewing^s sarcoma metastatic
     Dosage: FIVE CYCLES
  2. VINCRISTINE [Suspect]
     Active Substance: VINCRISTINE
     Indication: Extra-osseous Ewing^s sarcoma metastatic
     Dosage: FIVE CYCLES
  3. CYCLOPHOSPHAMIDE [Suspect]
     Active Substance: CYCLOPHOSPHAMIDE
     Indication: Extra-osseous Ewing^s sarcoma metastatic
     Dosage: FIVE CYCLES

REACTIONS (6)
  - Death [Fatal]
  - Extra-osseous Ewing^s sarcoma metastatic [Unknown]
  - Metastases to peritoneum [Unknown]
  - Disease progression [Unknown]
  - Metastases to liver [Unknown]
  - Drug ineffective for unapproved indication [Unknown]
